FAERS Safety Report 11969568 (Version 1)
Quarter: 2016Q1

REPORT INFORMATION
  Report Type: Spontaneous
  Country: US (occurrence: US)
  Receive Date: 20160128
  Receipt Date: 20160128
  Transmission Date: 20160526
  Serious: Yes (Hospitalization, Other)
  Sender: FDA-Public Use
  Company Number: US-ACTAVIS-2016-01662

PATIENT
  Age: 57 Year
  Sex: Female

DRUGS (2)
  1. CAPECITABINE (UNKNOWN) [Suspect]
     Active Substance: CAPECITABINE
     Indication: ADENOCARCINOMA PANCREAS
     Dosage: UNK, 6 WEEK
     Route: 065
  2. GEMCITABINE (ATLLC) [Suspect]
     Active Substance: GEMCITABINE HYDROCHLORIDE
     Indication: ADENOCARCINOMA PANCREAS
     Dosage: UNK, CYCLICAL ( 6 CYCLES)
     Route: 065

REACTIONS (1)
  - Steatohepatitis [Not Recovered/Not Resolved]
